FAERS Safety Report 12751644 (Version 1)
Quarter: 2016Q3

REPORT INFORMATION
  Report Type: Spontaneous
  Country: US (occurrence: US)
  Receive Date: 20160916
  Receipt Date: 20160916
  Transmission Date: 20161109
  Serious: Yes (Hospitalization)
  Sender: FDA-Public Use
  Company Number: None

PATIENT
  Age: 93 Year
  Sex: Female
  Weight: 76.7 kg

DRUGS (1)
  1. CIPROFLOXACIN. [Suspect]
     Active Substance: CIPROFLOXACIN
     Indication: URINARY TRACT INFECTION
     Route: 048
     Dates: start: 20160516, end: 20160518

REACTIONS (7)
  - Documented hypersensitivity to administered product [None]
  - Respiratory arrest [None]
  - Inappropriate antidiuretic hormone secretion [None]
  - Urinary tract infection [None]
  - Blood magnesium decreased [None]
  - Seizure [None]
  - Hyponatraemia [None]

NARRATIVE: CASE EVENT DATE: 20160520
